FAERS Safety Report 16351962 (Version 1)
Quarter: 2019Q3

REPORT INFORMATION
  Report Type: Spontaneous
  Country: US (occurrence: US)
  Receive Date: 20190523
  Receipt Date: 20190523
  Transmission Date: 20191004
  Serious: Yes (Life-Threatening, Hospitalization, Disabling)
  Sender: FDA-Public Use
  Company Number: None

PATIENT
  Age: 78 Year
  Sex: Female
  Weight: 53.9 kg

DRUGS (9)
  1. ATORVASTATIN 5 MG BY MOUTH ONCE DAILY [Concomitant]
  2. VITAMIN D3 400 UNITS BY MOUTH ONCE DAILY [Concomitant]
  3. CENTRUM MULTIVITAMIN ONCE DAILY WITH SUPPER [Concomitant]
  4. METOPROLOL SUCCINATE 25 MG SR TABLET BY MOUTH ONCE DAILY [Concomitant]
  5. CALCIUM CARBONATE-VITAMIN D3 600 MG-800 UNITS: TAKE 1 TAB TWICE DAILY [Concomitant]
  6. CONJUGATED ESTROGENS 0.625 MG/G VAGINAL CREAM: APPLY DAILY AS NEEDED [Concomitant]
  7. SYNTHROID 100 MCG TABLET BY MOUTH ONCE DAILY (BRAND NAME ONLY) [Concomitant]
  8. XARELTO [Suspect]
     Active Substance: RIVAROXABAN
     Indication: ATRIAL FIBRILLATION
     Route: 048
     Dates: start: 20180712, end: 20190522
  9. HYDROCORTISONE: TAKE 10 MG BY MOUTH EVERY MORNING AND 5 MG EVERY NIGHT [Concomitant]

REACTIONS (5)
  - Coma [None]
  - Cerebral haemorrhage [None]
  - Decerebrate posture [None]
  - Hemiplegia [None]
  - Aphasia [None]

NARRATIVE: CASE EVENT DATE: 20190521
